FAERS Safety Report 9302965 (Version 1)
Quarter: 2013Q2

REPORT INFORMATION
  Report Type: Spontaneous
  Country: US (occurrence: US)
  Receive Date: 20130522
  Receipt Date: 20130522
  Transmission Date: 20140414
  Serious: Yes (Other)
  Sender: FDA-Public Use
  Company Number: US-BRISTOL-MYERS SQUIBB COMPANY-18896241

PATIENT
  Age: 68 Year
  Sex: Male
  Weight: 99.77 kg

DRUGS (5)
  1. BYETTA [Suspect]
     Indication: TYPE 2 DIABETES MELLITUS
     Dosage: PRESCRIPT:237782695,DURATION OF THERAPY: ABT A YR+ A 1HALF?5MCG BID MONTH
  2. METFORMIN [Concomitant]
  3. LANTUS [Concomitant]
  4. INSULIN [Concomitant]
  5. GLIMEPIRIDE [Concomitant]

REACTIONS (2)
  - Sinusitis [Recovering/Resolving]
  - Injection site haemorrhage [Recovering/Resolving]
